FAERS Safety Report 5741437-8 (Version None)
Quarter: 2008Q2

REPORT INFORMATION
  Report Type: 
  Country: None (occurrence: None)
  Receive Date: 20080514
  Receipt Date: 20080506
  Transmission Date: 20081010
  Serious: Yes (Other)
  Sender: FDA-Public Use
  Company Number: 2008AP001152

PATIENT
  Age: 57 Year
  Sex: Female

DRUGS (3)
  1. PRAVASTATIN [Suspect]
     Dosage: 20 MG; PO; 10 MG; PO
     Route: 048
  2. ACETYLSALICYLIC ACID SRT [Concomitant]
  3. ERYTHROMYCIN [Concomitant]

REACTIONS (9)
  - ABSCESS [None]
  - ANOREXIA [None]
  - APATHY [None]
  - BACK PAIN [None]
  - HYPOAESTHESIA [None]
  - MALAISE [None]
  - MUSCULOSKELETAL PAIN [None]
  - PARAESTHESIA [None]
  - TRANSIENT ISCHAEMIC ATTACK [None]
